FAERS Safety Report 25040036 (Version 1)
Quarter: 2025Q1

REPORT INFORMATION
  Report Type: Spontaneous
  Country: US (occurrence: US)
  Receive Date: 20250305
  Receipt Date: 20250305
  Transmission Date: 20250408
  Serious: Yes (Hospitalization)
  Sender: JOHNSON AND JOHNSON
  Company Number: US-JNJFOC-20250205944

PATIENT
  Age: 65 Year
  Sex: Female
  Weight: 62.1 kg

DRUGS (24)
  1. OPSUMIT [Suspect]
     Active Substance: MACITENTAN
     Indication: Product used for unknown indication
     Route: 048
  2. REMODULIN [Suspect]
     Active Substance: TREPROSTINIL
     Indication: Pulmonary hypertension
     Route: 042
     Dates: start: 20240803
  3. REMODULIN [Suspect]
     Active Substance: TREPROSTINIL
     Route: 042
  4. REMODULIN [Suspect]
     Active Substance: TREPROSTINIL
     Route: 042
     Dates: start: 2024
  5. ADEMPAS [Suspect]
     Active Substance: RIOCIGUAT
     Indication: Product used for unknown indication
     Route: 048
     Dates: start: 2024
  6. MIDODRINE HYDROCHLORIDE [Concomitant]
     Active Substance: MIDODRINE HYDROCHLORIDE
  7. CLOBETASOL PROPIONATE [Concomitant]
     Active Substance: CLOBETASOL PROPIONATE
  8. LEVOTHYROXINE SODIUM [Concomitant]
     Active Substance: LEVOTHYROXINE SODIUM
  9. TYLENOL EXTRA STRENGTH [Concomitant]
     Active Substance: ACETAMINOPHEN
  10. POTASSIUM CHLORIDE [Concomitant]
     Active Substance: POTASSIUM CHLORIDE
  11. TADALAFIL [Concomitant]
     Active Substance: TADALAFIL
  12. OMEPRAZOLE [Concomitant]
     Active Substance: OMEPRAZOLE
  13. MAGNESIUM OXIDE [Concomitant]
     Active Substance: MAGNESIUM OXIDE
  14. ALBUTEROL SULFATE [Concomitant]
     Active Substance: ALBUTEROL SULFATE
  15. LOVENOX [Concomitant]
     Active Substance: ENOXAPARIN SODIUM
  16. IMITREX [Concomitant]
     Active Substance: SUMATRIPTAN SUCCINATE
  17. VITAMINS [Concomitant]
     Active Substance: VITAMINS
  18. MONTELUKAST [Concomitant]
     Active Substance: MONTELUKAST
  19. OXYGEN [Concomitant]
     Active Substance: OXYGEN
  20. BUMETANIDE [Concomitant]
     Active Substance: BUMETANIDE
  21. BIOTIN [Concomitant]
     Active Substance: BIOTIN
  22. CALCIUM CITRATE + D3 [Concomitant]
  23. FAMOTIDINE [Concomitant]
     Active Substance: FAMOTIDINE
  24. FLUTICASONE PROPIONATE [Concomitant]
     Active Substance: FLUTICASONE PROPIONATE

REACTIONS (8)
  - Pulmonary artery occlusion [Recovering/Resolving]
  - Arthralgia [Unknown]
  - Palpitations [Unknown]
  - Tachycardia [Unknown]
  - Presyncope [Unknown]
  - Gastrooesophageal reflux disease [Unknown]
  - Chest pain [Unknown]
  - Abdominal discomfort [Unknown]

NARRATIVE: CASE EVENT DATE: 20240101
